FAERS Safety Report 13454094 (Version 1)
Quarter: 2017Q2

REPORT INFORMATION
  Report Type: Spontaneous
  Country: US (occurrence: US)
  Receive Date: 20170418
  Receipt Date: 20170418
  Transmission Date: 20170830
  Serious: No
  Sender: FDA-Public Use
  Company Number: US-ALLERGAN-1673205US

PATIENT
  Age: 84 Year
  Sex: Female

DRUGS (1)
  1. LUMIGAN [Suspect]
     Active Substance: BIMATOPROST
     Indication: GLAUCOMA
     Dosage: 2 GTT, QHS
     Route: 047
     Dates: start: 201609

REACTIONS (5)
  - Macular degeneration [Unknown]
  - Erythema of eyelid [Not Recovered/Not Resolved]
  - Pigmentation disorder [Not Recovered/Not Resolved]
  - Intraocular pressure increased [Unknown]
  - Eyelid rash [Not Recovered/Not Resolved]

NARRATIVE: CASE EVENT DATE: 201609
